FAERS Safety Report 14321678 (Version 1)
Quarter: 2017Q4

REPORT INFORMATION
  Report Type: Spontaneous
  Country: DK (occurrence: DK)
  Receive Date: 20171224
  Receipt Date: 20171224
  Transmission Date: 20180321
  Serious: Yes (Other)
  Sender: FDA-Public Use
  Company Number: PHHY2017DK192157

PATIENT
  Age: 80 Year
  Sex: Female

DRUGS (2)
  1. PACLITAXEL EBEWE [Suspect]
     Active Substance: PACLITAXEL
     Indication: BREAST CANCER
     Route: 042
  2. SOLU-MEDROL [Suspect]
     Active Substance: METHYLPREDNISOLONE SODIUM SUCCINATE
     Indication: PREMEDICATION
     Route: 065

REACTIONS (3)
  - Discomfort [Unknown]
  - Hypotension [Unknown]
  - Back pain [Unknown]

NARRATIVE: CASE EVENT DATE: 20171108
